FAERS Safety Report 9826992 (Version 3)
Quarter: 2014Q1

REPORT INFORMATION
  Report Type: Spontaneous
  Country: JP (occurrence: JP)
  Receive Date: 20140117
  Receipt Date: 20140206
  Transmission Date: 20141002
  Serious: Yes (Death, Life-Threatening)
  Sender: FDA-Public Use
  Company Number: JP-B.I. PHARMACEUTICALS,INC./RIDGEFIELD-2014-BI-02260NB

PATIENT
  Age: 80 Year
  Sex: Male
  Weight: 80 kg

DRUGS (4)
  1. PRAZAXA [Suspect]
     Indication: ATRIAL FIBRILLATION
     Dosage: 150 MG
     Route: 048
     Dates: start: 201312, end: 20140105
  2. KREMEZIN / SPHERICAL CARBON ADSORBENT [Concomitant]
     Indication: RENAL FAILURE
     Route: 048
  3. JANUVIA / SITAGLIPTIN PHOSPHATE HYDRATE [Concomitant]
     Indication: DIABETES MELLITUS
     Route: 048
  4. OLMETEC / OLMESARTAN MEDOXOMIL [Concomitant]
     Indication: HYPERTENSION
     Route: 048

REACTIONS (2)
  - Renal failure acute [Fatal]
  - Thalamus haemorrhage [Unknown]
